FAERS Safety Report 8455740 (Version 3)
Quarter: 2013Q1

REPORT INFORMATION
  Report Type: Spontaneous
  Country: US (occurrence: US)
  Receive Date: 20120313
  Receipt Date: 20130322
  Transmission Date: 20140127
  Serious: Yes (Death, Hospitalization, Other)
  Sender: FDA-Public Use
  Company Number: US-ELI_LILLY_AND_COMPANY-US201203000652

PATIENT
  Sex: Female

DRUGS (20)
  1. FORTEO [Suspect]
     Indication: OSTEOPOROSIS
     Dosage: 20 UG, QD
     Route: 058
     Dates: start: 2011
  2. FORTEO [Suspect]
     Dosage: 20 UG, QD
     Route: 058
  3. FORTEO [Suspect]
     Dosage: 20 UG, QD
     Route: 058
  4. CALCIUM [Concomitant]
  5. COREG [Concomitant]
  6. VITAMIN B12 [Concomitant]
  7. PLAQUENIL [Concomitant]
  8. SINGULAIR [Concomitant]
  9. COUMADIN [Concomitant]
     Indication: PULMONARY EMBOLISM
  10. PRILOSEC [Concomitant]
  11. MULTIVITAMIN [Concomitant]
  12. ADVAIR [Concomitant]
  13. SPIRIVA [Concomitant]
  14. ASTEPRO [Concomitant]
     Route: 045
  15. FLONASE [Concomitant]
     Route: 045
  16. CELEBREX [Concomitant]
  17. MECLIZINE [Concomitant]
  18. PREDNISONE [Concomitant]
  19. COLESTIPOL [Concomitant]
  20. NEURONTIN [Concomitant]

REACTIONS (10)
  - Death [Fatal]
  - Fractured coccyx [Recovered/Resolved]
  - Fall [Recovered/Resolved]
  - Haemorrhage [Recovered/Resolved]
  - Chest discomfort [Not Recovered/Not Resolved]
  - Pleural effusion [Unknown]
  - Pseudomonas infection [Recovering/Resolving]
  - Respiratory tract infection fungal [Recovering/Resolving]
  - Systemic lupus erythematosus [Recovered/Resolved]
  - Antiphospholipid syndrome [Unknown]
